FAERS Safety Report 5750382-3 (Version None)
Quarter: 2008Q2

REPORT INFORMATION
  Report Type: 
  Country: None (occurrence: None)
  Receive Date: 20080528
  Receipt Date: 20080522
  Transmission Date: 20081010
  Serious: Yes (Hospitalization)
  Sender: FDA-Public Use
  Company Number: FR-WYE-G01576908

PATIENT
  Sex: Male
  Weight: 23 kg

DRUGS (2)
  1. ADVIL [Suspect]
     Dosage: UNKNOWN
     Route: 048
     Dates: start: 20080312, end: 20080314
  2. DOLIPRANE [Concomitant]
     Dosage: UNKNOWN
     Route: 048
     Dates: start: 20080312

REACTIONS (5)
  - CELLULITIS [None]
  - CONDITION AGGRAVATED [None]
  - INDURATION [None]
  - TOOTH INFECTION [None]
  - TOOTHACHE [None]
